FAERS Safety Report 16924356 (Version 1)
Quarter: 2019Q4

REPORT INFORMATION
  Report Type: Other
  Country: DK (occurrence: DK)
  Receive Date: 20191016
  Receipt Date: 20191016
  Transmission Date: 20200122
  Serious: Yes (Hospitalization)
  Sender: FDA-Public Use
  Company Number: DK-ASTELLAS-2019US038962

PATIENT
  Age: 78 Year
  Sex: Female

DRUGS (10)
  1. TRIMOPAN                           /00158501/ [Concomitant]
     Active Substance: TRIMETHOPRIM
     Indication: PROPHYLAXIS URINARY TRACT INFECTION
     Route: 048
     Dates: start: 20190130, end: 20190819
  2. OVESTIN [Concomitant]
     Active Substance: ESTRIOL
     Indication: OESTROGEN THERAPY
     Dosage: 0.5 MG, TWICE WEEKLY
     Route: 067
     Dates: start: 20190123, end: 20190820
  3. BETMIGA [Suspect]
     Active Substance: MIRABEGRON
     Indication: HYPERTONIC BLADDER
     Route: 048
     Dates: start: 2014
  4. FUROSEMIDE. [Concomitant]
     Active Substance: FUROSEMIDE
     Indication: DIURETIC THERAPY
     Route: 048
     Dates: start: 20180516
  5. CLOPIDOGREL [Concomitant]
     Active Substance: CLOPIDOGREL BISULFATE
     Indication: THROMBOSIS PROPHYLAXIS
     Route: 048
     Dates: start: 20131002
  6. ATORVASTATIN [Concomitant]
     Active Substance: ATORVASTATIN
     Indication: HYPERCHOLESTEROLAEMIA
     Dosage: 40 MG, ONCE DAILY (STRENGTH 40MG OR 80MG)
     Route: 048
     Dates: start: 20160518
  7. OCULAC                             /06838601/ [Concomitant]
     Indication: DRY EYE
     Dosage: 1 DROP, AS NEEDED (STRENGTH 50MG/ML)
     Route: 050
     Dates: start: 20130625
  8. EYE DROPS                          /00256502/ [Concomitant]
     Active Substance: OXYMETAZOLINE
     Indication: EYE INFECTION
     Dosage: UNK UNK, AS NEEDED
     Route: 050
     Dates: start: 20180809, end: 20190819
  9. ROXITHROMYCIN [Concomitant]
     Active Substance: ROXITHROMYCIN
     Indication: PNEUMONIA
     Route: 048
     Dates: start: 20190903, end: 20190910
  10. MOVICOL [Concomitant]
     Active Substance: POLYETHYLENE GLYCOL 3350\POTASSIUM CHLORIDE\SODIUM BICARBONATE\SODIUM CHLORIDE
     Indication: CONSTIPATION
     Dosage: 1 DF, 4 TIMES DAILY (1 PIECE UPTO 4 TIMES A  DAY)
     Route: 048
     Dates: start: 20130622

REACTIONS (2)
  - Urinary tract infection [Not Recovered/Not Resolved]
  - Dysuria [Not Recovered/Not Resolved]
